FAERS Safety Report 19760979 (Version 1)
Quarter: 2021Q3

REPORT INFORMATION
  Report Type: Spontaneous
  Country: US (occurrence: US)
  Receive Date: 20210827
  Receipt Date: 20210827
  Transmission Date: 20211014
  Serious: No
  Sender: FDA-Public Use
  Company Number: None

PATIENT
  Age: 61 Year
  Sex: Female

DRUGS (10)
  1. LEVEITRACETA [Concomitant]
  2. KEPPRA [Concomitant]
     Active Substance: LEVETIRACETAM
  3. TYLENOL [Concomitant]
     Active Substance: ACETAMINOPHEN
  4. CALCIUM [Concomitant]
     Active Substance: CALCIUM
  5. ZOLOFT [Concomitant]
     Active Substance: SERTRALINE HYDROCHLORIDE
  6. CAPECITABINE. [Suspect]
     Active Substance: CAPECITABINE
     Indication: LYMPHOCYTIC LEUKAEMIA
     Dosage: ?          OTHER FREQUENCY:150MG BID M,W,F;?
     Route: 048
     Dates: start: 20210309
  7. VIMPAT [Concomitant]
     Active Substance: LACOSAMIDE
  8. VIT D [Concomitant]
     Active Substance: VITAMIN D NOS
  9. COLACE [Concomitant]
     Active Substance: DOCUSATE SODIUM
  10. OXYCOD/ASA [Concomitant]

REACTIONS (3)
  - Therapy interrupted [None]
  - Hip fracture [None]
  - Spinal compression fracture [None]

NARRATIVE: CASE EVENT DATE: 20210727
